FAERS Safety Report 6297745-8 (Version None)
Quarter: 2009Q3

REPORT INFORMATION
  Report Type: 
  Country: None (occurrence: None)
  Receive Date: 20090805
  Receipt Date: 20090729
  Transmission Date: 20100115
  Serious: Yes (Other)
  Sender: FDA-Public Use
  Company Number: GB-ROCHE-647704

PATIENT

DRUGS (3)
  1. CAPECITABINE [Suspect]
     Indication: COLORECTAL CANCER
     Dosage: 1ST LINE TREATMENT
     Route: 065
  2. AVASTIN [Suspect]
     Indication: COLORECTAL CANCER
     Dosage: 1ST LINE TREATMENT
     Route: 065
  3. OXALIPLATIN [Suspect]
     Indication: COLORECTAL CANCER
     Dosage: 1ST LINE TREATMENT
     Route: 065

REACTIONS (1)
  - BLOOD ALKALINE PHOSPHATASE INCREASED [None]
